FAERS Safety Report 15169168 (Version 1)
Quarter: 2018Q3

REPORT INFORMATION
  Report Type: Spontaneous
  Country: ES (occurrence: ES)
  Receive Date: 20180720
  Receipt Date: 20180720
  Transmission Date: 20181010
  Serious: Yes (Other)
  Sender: FDA-Public Use
  Company Number: ES-TEVA-2018-ES-929216

PATIENT
  Age: 12 Year
  Sex: Female

DRUGS (1)
  1. ETOPOSIDO [Suspect]
     Active Substance: ETOPOSIDE
     Dosage: 140 MG EN 243 MLDE SUERO SALINO
     Dates: start: 20180619

REACTIONS (4)
  - Erythema [Unknown]
  - Choking sensation [Unknown]
  - Medication error [Unknown]
  - Lip swelling [Unknown]

NARRATIVE: CASE EVENT DATE: 20180619
